FAERS Safety Report 13547595 (Version 2)
Quarter: 2020Q3

REPORT INFORMATION
  Report Type: Spontaneous
  Country: US (occurrence: US)
  Receive Date: 20170515
  Receipt Date: 20200813
  Transmission Date: 20201102
  Serious: No
  Sender: FDA-Public Use
  Company Number: US-BIOGEN-2017BI00399573

PATIENT
  Sex: Female

DRUGS (1)
  1. TYSABRI [Suspect]
     Active Substance: NATALIZUMAB
     Indication: MULTIPLE SCLEROSIS
     Dates: start: 20150807

REACTIONS (10)
  - Pain [Unknown]
  - Muscular weakness [Unknown]
  - Limb discomfort [Unknown]
  - Malaise [Unknown]
  - Stress [Unknown]
  - Muscle fatigue [Unknown]
  - Fatigue [Unknown]
  - Feelings of worthlessness [Unknown]
  - Asthenia [Unknown]
  - Migraine [Unknown]
